FAERS Safety Report 5119538-7 (Version None)
Quarter: 2006Q3

REPORT INFORMATION
  Report Type: 
  Country: None (occurrence: None)
  Receive Date: 20060928
  Receipt Date: 20060919
  Transmission Date: 20061208
  Serious: Yes (Hospitalization, Other)
  Sender: FDA-Public Use
  Company Number: 2005027907

PATIENT
  Age: 74 Year
  Sex: Male

DRUGS (2)
  1. LIPITOR [Suspect]
     Indication: HYPERLIPIDAEMIA
     Dosage: 10 MG
     Dates: start: 19970101, end: 20050131
  2. AVALIDE [Concomitant]

REACTIONS (5)
  - ANAEMIA [None]
  - ARTERIOSCLEROSIS [None]
  - CONDITION AGGRAVATED [None]
  - HYPERTENSION [None]
  - ISCHAEMIC STROKE [None]
